FAERS Safety Report 9028932 (Version 1)
Quarter: 2013Q1

REPORT INFORMATION
  Report Type: Spontaneous
  Country: US (occurrence: US)
  Receive Date: 20130124
  Receipt Date: 20130124
  Transmission Date: 20140127
  Serious: Yes (Other)
  Sender: FDA-Public Use
  Company Number: US-BAYER-2013-005880

PATIENT
  Age: 37 Year
  Sex: Female

DRUGS (13)
  1. BAYER ASPIRIN REGIMEN REGULAR 325 MG STRENGTH [Suspect]
     Dosage: 1 DF, BID
     Route: 048
  2. BAYER ASPIRIN REGIMEN ADULT LOW STRENGTH [Suspect]
     Dosage: 1 DF, QID
     Route: 048
  3. FISH OIL [Concomitant]
  4. DIAZEPAM [Concomitant]
  5. ENSURE HIGH PROTEIN [Concomitant]
  6. CHEMOTHERAPEUTICS NOS [Concomitant]
  7. TAXOL [Concomitant]
  8. STEROIDS [Concomitant]
  9. PREDNISONE [Concomitant]
  10. BENADRYL [Concomitant]
  11. ZOLOFT [Concomitant]
  12. OMEGA 3-6-9 [Concomitant]
  13. PRILOSEC [Concomitant]

REACTIONS (4)
  - Cerebrovascular accident [None]
  - Tinnitus [Not Recovered/Not Resolved]
  - Rash [Not Recovered/Not Resolved]
  - Off label use [None]
